FAERS Safety Report 14285107 (Version 1)
Quarter: 2017Q4

REPORT INFORMATION
  Report Type: Report from Study
  Country: GB (occurrence: GB)
  Receive Date: 20171214
  Receipt Date: 20171214
  Transmission Date: 20180321
  Serious: Yes (Hospitalization, Other)
  Sender: FDA-Public Use
  Company Number: GB-ROCHE-2034753

PATIENT
  Age: 69 Year
  Sex: Male

DRUGS (3)
  1. METHOTREXATE. [Concomitant]
     Active Substance: METHOTREXATE
     Route: 065
  2. TOCILIZUMAB. [Suspect]
     Active Substance: TOCILIZUMAB
     Indication: RHEUMATOID ARTHRITIS
     Dosage: THE MOST RECENT DOS PRIOR TO SAE IS 19/NOV/2015.
     Route: 042
     Dates: start: 20150729, end: 20151119
  3. TOCILIZUMAB. [Suspect]
     Active Substance: TOCILIZUMAB
     Route: 042
     Dates: start: 20140314, end: 20150204

REACTIONS (5)
  - Anaemia [Unknown]
  - Device related infection [Unknown]
  - Osteomyelitis [Unknown]
  - Periprosthetic fracture [Unknown]
  - Fall [Unknown]

NARRATIVE: CASE EVENT DATE: 20150115
